FAERS Safety Report 10659271 (Version 3)
Quarter: 2015Q1

REPORT INFORMATION
  Report Type: Report from Study
  Country: AR (occurrence: AR)
  Receive Date: 20141217
  Receipt Date: 20150204
  Transmission Date: 20150720
  Serious: Yes (Congenital Anomaly, Other)
  Sender: FDA-Public Use
  Company Number: AR-ABBVIE-14P-007-1321736-00

PATIENT
  Sex: Male

DRUGS (3)
  1. KALETRA [Suspect]
     Active Substance: LOPINAVIR\RITONAVIR
     Indication: MATERNAL EXPOSURE TIMING UNSPECIFIED
     Route: 064
  2. EFAVIRENZ [Suspect]
     Active Substance: EFAVIRENZ
     Indication: MATERNAL EXPOSURE TIMING UNSPECIFIED
     Route: 064
  3. LAMIVUDINE. [Suspect]
     Active Substance: LAMIVUDINE
     Indication: MATERNAL EXPOSURE TIMING UNSPECIFIED
     Route: 064

REACTIONS (2)
  - Foetal exposure during pregnancy [Unknown]
  - Plagiocephaly [Unknown]

NARRATIVE: CASE EVENT DATE: 20111203
